FAERS Safety Report 9530866 (Version 2)
Quarter: 2014Q3

REPORT INFORMATION
  Report Type: Spontaneous
  Country: CA (occurrence: CA)
  Receive Date: 20130918
  Receipt Date: 20140910
  Transmission Date: 20150326
  Serious: Yes (Hospitalization)
  Sender: FDA-Public Use
  Company Number: CA-009507513-1309CAN006015

PATIENT
  Age: 85 Year
  Sex: Female
  Weight: 64 kg

DRUGS (16)
  1. ASPIRIN. [Concomitant]
     Active Substance: ASPIRIN
     Dosage: 320 MG, ONCE, STAT
     Dates: start: 20121006
  2. LOVENOX [Concomitant]
     Active Substance: ENOXAPARIN SODIUM
     Dosage: 60 MG, BID
     Route: 058
     Dates: start: 20121009, end: 20121009
  3. SYNTHROID [Concomitant]
     Active Substance: LEVOTHYROXINE SODIUM
     Dosage: 0.1 MG, UNK
     Route: 065
  4. AMLODIPINE [Concomitant]
     Active Substance: AMLODIPINE BESYLATE
     Dosage: 2.5 MG, UNK
  5. PLAVIX [Concomitant]
     Active Substance: CLOPIDOGREL BISULFATE
     Dosage: 100 MG, ONCE, STAT
     Route: 048
     Dates: start: 20121009, end: 20121009
  6. SPIRIVA [Concomitant]
     Active Substance: TIOTROPIUM BROMIDE MONOHYDRATE
     Dosage: 8 MG, QD
     Route: 048
  7. CANDESARTAN CILEXETIL. [Concomitant]
     Active Substance: CANDESARTAN CILEXETIL
     Dosage: 8 MG, UNK
     Route: 048
  8. CENTRUM (MINERALS (UNSPECIFIED) (+) VITAMINS (UNSPECIFIED)) [Concomitant]
     Dosage: 1 DF, QD
     Route: 048
  9. ASPIRIN. [Concomitant]
     Active Substance: ASPIRIN
     Dosage: 80 MG, QD
     Route: 048
     Dates: start: 20121009
  10. PANTOPRAZOLE [Concomitant]
     Active Substance: PANTOPRAZOLE SODIUM
     Dosage: 40 MG, QD
     Route: 065
     Dates: start: 20121009
  11. INTEGRILIN [Suspect]
     Active Substance: EPTIFIBATIDE
     Indication: ACUTE MYOCARDIAL INFARCTION
     Dosage: 22357.5 MG, UNK
     Route: 042
     Dates: start: 20121009
  12. BISOPROLOL [Concomitant]
     Active Substance: BISOPROLOL
     Dosage: 2.5 MG, UNK
     Route: 048
  13. ATORVASTATIN CALCIUM. [Concomitant]
     Active Substance: ATORVASTATIN CALCIUM
     Dosage: 40 MG, UNK
     Route: 048
  14. LASIX [Concomitant]
     Active Substance: FUROSEMIDE
     Dosage: 20 MG, BID
     Route: 048
  15. PLAVIX [Concomitant]
     Active Substance: CLOPIDOGREL BISULFATE
     Dosage: 75 MG, QD
     Dates: start: 20121008
  16. ADVAIR HFA [Concomitant]
     Active Substance: FLUTICASONE PROPIONATE\SALMETEROL XINAFOATE
     Dosage: UNK
     Route: 065

REACTIONS (5)
  - Blood creatinine increased [Recovered/Resolved]
  - Blood urea increased [Recovered/Resolved]
  - Melaena [Recovered/Resolved]
  - Gastrointestinal haemorrhage [Recovered/Resolved]
  - Haemoglobin decreased [Recovered/Resolved]

NARRATIVE: CASE EVENT DATE: 20121010
